FAERS Safety Report 21390621 (Version 1)
Quarter: 2022Q3

REPORT INFORMATION
  Report Type: Spontaneous
  Country: US (occurrence: None)
  Receive Date: 20220927
  Receipt Date: 20220927
  Transmission Date: 20221026
  Serious: Yes (Hospitalization)
  Sender: FDA-Public Use
  Company Number: None

PATIENT
  Age: 45 Year
  Sex: Female

DRUGS (1)
  1. CAPECITABINE [Suspect]
     Active Substance: CAPECITABINE
     Dosage: FREQUENCY : TWICE A DAY;?
     Route: 048
     Dates: start: 202207, end: 202208

REACTIONS (4)
  - Hypokalaemia [None]
  - Dysgeusia [None]
  - Dysgeusia [None]
  - Therapy cessation [None]

NARRATIVE: CASE EVENT DATE: 20220829
